FAERS Safety Report 10286328 (Version 1)
Quarter: 2014Q3

REPORT INFORMATION
  Report Type: Spontaneous
  Country: CZ (occurrence: CZ)
  Receive Date: 20140709
  Receipt Date: 20140709
  Transmission Date: 20150326
  Serious: Yes (Hospitalization, Other)
  Sender: FDA-Public Use
  Company Number: CZ-TAKEDA-2014JNJ004295

PATIENT

DRUGS (3)
  1. VELCADE [Suspect]
     Active Substance: BORTEZOMIB
     Indication: AMYLOIDOSIS
     Dosage: 1.3 MG/M2, UNK
     Route: 042
  2. DEXAMETHASONE. [Suspect]
     Active Substance: DEXAMETHASONE
     Indication: AMYLOIDOSIS
     Dosage: 20 MG, UNK
     Route: 065
  3. CYCLOPHOSPHAMIDE. [Suspect]
     Active Substance: CYCLOPHOSPHAMIDE
     Indication: AMYLOIDOSIS
     Dosage: 600 MG, UNK
     Route: 065

REACTIONS (4)
  - Off label use [Unknown]
  - Cardiac amyloidosis [Unknown]
  - Cardiac fibrillation [Unknown]
  - Renal failure [Unknown]
